FAERS Safety Report 8891874 (Version 1)
Quarter: 2012Q4

REPORT INFORMATION
  Report Type: 
  Country: US (occurrence: US)
  Receive Date: 20121107
  Receipt Date: 20121107
  Transmission Date: 20130627
  Serious: No
  Sender: FDA-Public Use
  Company Number: US-AMGEN-USASP2011051190

PATIENT
  Age: 54 Year
  Sex: Female

DRUGS (7)
  1. ENBREL [Suspect]
     Indication: PRODUCT USED FOR UNKNOWN INDICATION
     Dosage: 50 mg, qwk
  2. PLAQUENIL                          /00072602/ [Concomitant]
     Dosage: 200 mg, UNK
  3. CELEBREX [Concomitant]
     Dosage: 50 mg, UNK
  4. LEFLUNOMIDE [Concomitant]
     Dosage: 10 mg, UNK
  5. ADVAIR HFA [Concomitant]
     Route: 055
  6. NEXIUM                             /01479302/ [Concomitant]
     Dosage: 20 mg, UNK
  7. PROAIR HFA [Concomitant]
     Route: 055

REACTIONS (2)
  - Injection site erythema [Unknown]
  - Injection site pruritus [Unknown]
